FAERS Safety Report 18486304 (Version 2)
Quarter: 2021Q3

REPORT INFORMATION
  Report Type: Spontaneous
  Country: DE (occurrence: DE)
  Receive Date: 20201110
  Receipt Date: 20210706
  Transmission Date: 20211014
  Serious: Yes (Hospitalization)
  Sender: FDA-Public Use
  Company Number: DE-FERRINGPH-2020FE07693

PATIENT
  Age: 29 Year
  Sex: Female

DRUGS (2)
  1. PROGESTERONE. [Suspect]
     Active Substance: PROGESTERONE
     Indication: PRODUCT USED FOR UNKNOWN INDICATION
     Dosage: 200 MG, 3 TIMES DAILY (1?1?1?0)
     Route: 065
  2. LEVOTHYROXINE SODIUM. [Concomitant]
     Active Substance: LEVOTHYROXINE SODIUM
     Dosage: 50 UG, 3 TIMES DAILY (1?1?1?0)

REACTIONS (6)
  - Nausea [Unknown]
  - Dizziness [Unknown]
  - Headache [Unknown]
  - Aphasia [Unknown]
  - Visual impairment [Unknown]
  - Vomiting [Unknown]
